FAERS Safety Report 5484579-7 (Version None)
Quarter: 2007Q4

REPORT INFORMATION
  Report Type: 
  Country: None (occurrence: None)
  Receive Date: 20071012
  Receipt Date: 20071002
  Transmission Date: 20080405
  Serious: Yes (Other)
  Sender: FDA-Public Use
  Company Number: US-PFIZER INC-2007060823

PATIENT
  Sex: Female
  Weight: 59 kg

DRUGS (2)
  1. LYRICA [Suspect]
     Indication: HERPES ZOSTER
  2. VERAPAMIL [Concomitant]

REACTIONS (9)
  - ACTIVITIES OF DAILY LIVING IMPAIRED [None]
  - DISTURBANCE IN ATTENTION [None]
  - DIZZINESS [None]
  - EYE PAIN [None]
  - FATIGUE [None]
  - FORMICATION [None]
  - SOMNOLENCE [None]
  - VISION BLURRED [None]
  - WEIGHT INCREASED [None]
